FAERS Safety Report 10099168 (Version 1)
Quarter: 2014Q2

REPORT INFORMATION
  Report Type: Spontaneous
  Country: US (occurrence: US)
  Receive Date: 20140423
  Receipt Date: 20140423
  Transmission Date: 20141212
  Serious: No
  Sender: FDA-Public Use
  Company Number: US-GILEAD-2013-0068195

PATIENT
  Sex: Female

DRUGS (2)
  1. LETAIRIS [Suspect]
     Indication: COR PULMONALE
     Dosage: 10 MG, QD
     Dates: start: 20090318
  2. FLOLAN [Suspect]

REACTIONS (2)
  - Rash [Unknown]
  - Rash [Unknown]
